FAERS Safety Report 6672480-2 (Version None)
Quarter: 2010Q2

REPORT INFORMATION
  Report Type: 
  Country: None (occurrence: None)
  Receive Date: 20100408
  Receipt Date: 20100326
  Transmission Date: 20101027
  Serious: Yes (Other)
  Sender: FDA-Public Use
  Company Number: DE-ELI_LILLY_AND_COMPANY-DE201001001740

PATIENT
  Sex: Female
  Weight: 90 kg

DRUGS (2)
  1. DULOXETINE HYDROCHLORIDE [Suspect]
     Indication: DIABETIC NEUROPATHY
     Dosage: 30 MG, UNK
     Route: 048
     Dates: start: 20090729, end: 20090808
  2. ANTIHYPERTENSIVES [Concomitant]

REACTIONS (4)
  - CARDIOVASCULAR DISORDER [None]
  - ILLUSION [None]
  - NAUSEA [None]
  - PRURITUS [None]
